FAERS Safety Report 6069061-0 (Version None)
Quarter: 2009Q1

REPORT INFORMATION
  Report Type: 
  Country: None (occurrence: None)
  Receive Date: 20090203
  Receipt Date: 20090120
  Transmission Date: 20090719
  Serious: Yes (Hospitalization, Other)
  Sender: FDA-Public Use
  Company Number: 2009PL000032

PATIENT
  Age: 63 Year
  Sex: Female

DRUGS (9)
  1. MERCAPTOPURINE [Suspect]
     Indication: AUTOIMMUNE HEPATITIS
     Dosage: 125 MG; QD;
  2. METOPROLOL TARTRATE [Concomitant]
  3. QUINAPRIL [Concomitant]
  4. HYDROCHLOROTHIAZIDE [Concomitant]
  5. ASPIRIN [Concomitant]
  6. INSULIN [Concomitant]
  7. OMEPRAZOLE [Concomitant]
  8. ETIDRONATE DISODIUM [Concomitant]
  9. PREDNISOLONE [Concomitant]

REACTIONS (5)
  - AUTOIMMUNE HEPATITIS [None]
  - CHOLESTASIS [None]
  - DISEASE RECURRENCE [None]
  - HEPATIC CIRRHOSIS [None]
  - HEPATITIS CHRONIC ACTIVE [None]
